FAERS Safety Report 12640805 (Version 2)
Quarter: 2016Q3

REPORT INFORMATION
  Report Type: Report from Study
  Country: US (occurrence: US)
  Receive Date: 20160810
  Receipt Date: 20160826
  Transmission Date: 20161109
  Serious: Yes (Death)
  Sender: FDA-Public Use
  Company Number: US-ABBVIE-16P-163-1697339-00

PATIENT
  Age: 74 Year
  Sex: Male
  Weight: 67.65 kg

DRUGS (2)
  1. CLOBEX [Concomitant]
     Active Substance: CLOBETASOL PROPIONATE
     Indication: PSORIASIS
     Dates: start: 20100622, end: 20160728
  2. HUMIRA [Suspect]
     Active Substance: ADALIMUMAB
     Indication: PSORIASIS
     Route: 058
     Dates: start: 200907, end: 20120401

REACTIONS (1)
  - Lyme disease [Fatal]

NARRATIVE: CASE EVENT DATE: 20160728
